FAERS Safety Report 5769047-7 (Version None)
Quarter: 2008Q2

REPORT INFORMATION
  Report Type: 
  Country: None (occurrence: None)
  Receive Date: 20080610
  Receipt Date: 20080529
  Transmission Date: 20081010
  Serious: Yes (Other)
  Sender: FDA-Public Use
  Company Number: 2008AP000397

PATIENT
  Age: 57 Year
  Sex: Female

DRUGS (6)
  1. PAROXETINE HCL [Suspect]
     Indication: DEPRESSION
     Dosage: 20 MG; TAB; PO; QD; 10 MG; TAB; PO; BID; 10 MG; TAB; PO; QD
     Route: 048
     Dates: start: 19990819
  2. PAROXETINE HCL [Suspect]
     Indication: DEPRESSION
     Dosage: 20 MG; TAB; PO; QD; 10 MG; TAB; PO; BID; 10 MG; TAB; PO; QD
     Route: 048
     Dates: start: 20020802
  3. PAROXETINE HCL [Suspect]
     Indication: DEPRESSION
     Dosage: 20 MG; TAB; PO; QD; 10 MG; TAB; PO; BID; 10 MG; TAB; PO; QD
     Route: 048
     Dates: start: 20030103
  4. AMITRIPTLINE HCL [Concomitant]
  5. CITALOPRAM HYDROBROMIDE [Concomitant]
  6. PHENYTOIN [Concomitant]

REACTIONS (15)
  - AGGRESSION [None]
  - AMNESIA [None]
  - ANXIETY [None]
  - BALANCE DISORDER [None]
  - DEPRESSED MOOD [None]
  - DIZZINESS [None]
  - DRUG WITHDRAWAL SYNDROME [None]
  - EMOTIONAL DISTRESS [None]
  - FATIGUE [None]
  - FEELING ABNORMAL [None]
  - HOMICIDAL IDEATION [None]
  - HYPERTENSION [None]
  - LETHARGY [None]
  - NAUSEA [None]
  - NIGHTMARE [None]
